FAERS Safety Report 21567468 (Version 1)
Quarter: 2022Q4

REPORT INFORMATION
  Report Type: Spontaneous
  Country: CA (occurrence: CA)
  Receive Date: 20221108
  Receipt Date: 20221108
  Transmission Date: 20230113
  Serious: Yes (Other)
  Sender: FDA-Public Use
  Company Number: CA-JNJFOC-20221107916

PATIENT
  Age: 69 Year
  Sex: Female
  Weight: 77 kg

DRUGS (1)
  1. REMICADE [Suspect]
     Active Substance: INFLIXIMAB
     Indication: Crohn^s disease
     Route: 041

REACTIONS (13)
  - Heart rate irregular [Unknown]
  - Tachycardia [Unknown]
  - Dyschezia [Unknown]
  - Blood pressure fluctuation [Unknown]
  - Blood pressure systolic increased [Unknown]
  - Constipation [Unknown]
  - Diarrhoea [Unknown]
  - Headache [Unknown]
  - Heart rate decreased [Unknown]
  - Hypertension [Unknown]
  - Intentional product use issue [Unknown]
  - Off label use [Unknown]
  - Inappropriate schedule of product administration [Unknown]
